FAERS Safety Report 14458296 (Version 1)
Quarter: 2018Q1

REPORT INFORMATION
  Report Type: Spontaneous
  Country: US (occurrence: US)
  Receive Date: 20180129
  Receipt Date: 20180129
  Transmission Date: 20180509
  Serious: No
  Sender: FDA-Public Use
  Company Number: None

PATIENT
  Age: 86 Year
  Sex: Female
  Weight: 49.9 kg

DRUGS (7)
  1. LEVOFLOXACIN 500 MG [Suspect]
     Active Substance: LEVOFLOXACIN
     Indication: BRONCHITIS
     Route: 048
     Dates: start: 20180117, end: 20180118
  2. COQ10 [Concomitant]
     Active Substance: UBIDECARENONE
  3. ASPIRIN. [Concomitant]
     Active Substance: ASPIRIN
  4. METHYLPREDNISOLONE. [Suspect]
     Active Substance: METHYLPREDNISOLONE
  5. MAGNESIUM [Concomitant]
     Active Substance: MAGNESIUM
  6. FISH OIL [Concomitant]
     Active Substance: FISH OIL
  7. VITAMIN D3 [Concomitant]
     Active Substance: CHOLECALCIFEROL

REACTIONS (11)
  - Tendon pain [None]
  - Dysstasia [None]
  - Paraesthesia [None]
  - Burning sensation [None]
  - Feeling abnormal [None]
  - Asthenia [None]
  - Pruritus [None]
  - Nervousness [None]
  - Syncope [None]
  - Hyperhidrosis [None]
  - Formication [None]

NARRATIVE: CASE EVENT DATE: 20180118
